FAERS Safety Report 4990433-7 (Version None)
Quarter: 2006Q2

REPORT INFORMATION
  Report Type: 
  Country: None (occurrence: None)
  Receive Date: 20060427
  Receipt Date: 20060417
  Transmission Date: 20061013
  Serious: Yes (Other)
  Sender: FDA-Public Use
  Company Number: 2006052514

PATIENT
  Sex: Female

DRUGS (2)
  1. XALATAN [Suspect]
     Indication: ILL-DEFINED DISORDER
  2. BEXTRA [Suspect]
     Indication: ARTHRALGIA

REACTIONS (6)
  - ARTHRALGIA [None]
  - EYE DISORDER [None]
  - OCULAR VASCULAR DISORDER [None]
  - PITUITARY TUMOUR [None]
  - VASCULAR OCCLUSION [None]
  - VISUAL DISTURBANCE [None]
